FAERS Safety Report 7639575-8 (Version None)
Quarter: 2011Q3

REPORT INFORMATION
  Report Type: 
  Country: None (occurrence: None)
  Receive Date: 20110721
  Receipt Date: 20110707
  Transmission Date: 20111222
  Serious: Yes (Hospitalization)
  Sender: FDA-Public Use
  Company Number: JP-2011-10615

PATIENT
  Age: 57 Year
  Sex: Male
  Weight: 68 kg

DRUGS (9)
  1. SIGMART (NICORANDIL) [Concomitant]
  2. ASPIRIN [Suspect]
     Dosage: 100 MG, QD, ORAL
     Route: 048
  3. BEZATOL SR (BEZAFIBRATE) [Concomitant]
  4. PLAVIX [Suspect]
     Indication: CORONARY ARTERIAL STENT INSERTION
     Dosage: 75MG, QD, ORAL
     Route: 048
     Dates: start: 20110209, end: 20110318
  5. MEXITIL [Concomitant]
  6. HALCION [Concomitant]
  7. DAONIL (GIBENCLAMIDE) [Concomitant]
  8. PLETAL [Suspect]
     Indication: CORONARY ARTERIAL STENT INSERTION
     Dosage: 100 MG, BID, ORAL
     Route: 048
     Dates: start: 20110209, end: 20110318
  9. TAMSULOSIN HYDROCHLORIDE [Concomitant]

REACTIONS (3)
  - OESOPHAGEAL ULCER [None]
  - ANAEMIA [None]
  - UPPER GASTROINTESTINAL HAEMORRHAGE [None]
